FAERS Safety Report 8928805 (Version 1)
Quarter: 2012Q4

REPORT INFORMATION
  Report Type: 
  Country: US (occurrence: US)
  Receive Date: 20121128
  Receipt Date: 20121128
  Transmission Date: 20130627
  Serious: No
  Sender: FDA-Public Use
  Company Number: US-VERTEX PHARMACEUTICAL INC.-2012-025027

PATIENT
  Sex: Male

DRUGS (3)
  1. INCIVEK [Suspect]
     Indication: HEPATITIS C
     Dosage: 750 mg, tid
     Route: 048
     Dates: start: 20121018
  2. RIBAVIRIN [Suspect]
     Indication: HEPATITIS C
     Dosage: 600 mg a.m, 400 mg p.m
     Route: 048
     Dates: start: 20121018
  3. PEGINTERFERON [Suspect]
     Indication: HEPATITIS C
     Dosage: UNK
     Dates: start: 20121018

REACTIONS (3)
  - Dyspnoea [Not Recovered/Not Resolved]
  - Fatigue [Not Recovered/Not Resolved]
  - Nausea [Not Recovered/Not Resolved]
